FAERS Safety Report 8034174-0 (Version None)
Quarter: 2012Q1

REPORT INFORMATION
  Report Type: 
  Country: None (occurrence: None)
  Receive Date: 20120110
  Receipt Date: 20120106
  Transmission Date: 20120608
  Serious: Yes (Hospitalization)
  Sender: FDA-Public Use
  Company Number: US-ABBOTT-11P-163-0887830-00

PATIENT
  Sex: Male
  Weight: 85.352 kg

DRUGS (12)
  1. ASPIRIN [Concomitant]
     Indication: PRODUCT USED FOR UNKNOWN INDICATION
  2. SINGULAIR [Concomitant]
     Indication: PRODUCT USED FOR UNKNOWN INDICATION
  3. PROAIR HFA [Concomitant]
     Indication: DYSPNOEA
  4. AMLODIDINE [Concomitant]
     Indication: PRODUCT USED FOR UNKNOWN INDICATION
  5. DIOVAN [Concomitant]
     Indication: HYPERTENSION
  6. BISOPROLOL FUMARATE [Concomitant]
     Indication: HYPERTENSION
  7. PLAVIX [Concomitant]
     Indication: PRODUCT USED FOR UNKNOWN INDICATION
  8. FLONAISE [Concomitant]
     Indication: SINUS DISORDER
  9. SIMCOR [Suspect]
     Indication: BLOOD CHOLESTEROL INCREASED
     Dosage: 500/40MG QD
     Dates: start: 20101201
  10. RANEXA [Concomitant]
     Indication: PRODUCT USED FOR UNKNOWN INDICATION
  11. ANTIBIOTIC [Concomitant]
     Indication: PRODUCT USED FOR UNKNOWN INDICATION
  12. ZETIA [Concomitant]
     Indication: PRODUCT USED FOR UNKNOWN INDICATION

REACTIONS (4)
  - PRURITUS GENERALISED [None]
  - CORONARY ARTERIAL STENT INSERTION [None]
  - FLUSHING [None]
  - PARAESTHESIA [None]
